FAERS Safety Report 24674190 (Version 4)
Quarter: 2025Q1

REPORT INFORMATION
  Report Type: Report from Study
  Country: US (occurrence: US)
  Receive Date: 20241128
  Receipt Date: 20250108
  Transmission Date: 20250409
  Serious: Yes (Hospitalization)
  Sender: ROCHE
  Company Number: US-ROCHE-10000143875

PATIENT
  Age: 50 Year
  Sex: Female
  Weight: 66.68 kg

DRUGS (15)
  1. OCREVUS [Suspect]
     Active Substance: OCRELIZUMAB
     Indication: Multiple sclerosis
     Dosage: MORE DOSAGE INFORMATION IS 300 MG SINGLE-USE VIAL
     Route: 042
  2. BACLOFEN [Concomitant]
     Active Substance: BACLOFEN
  3. BIOTIN [Concomitant]
     Active Substance: BIOTIN
  4. CLONAZEPAM [Concomitant]
     Active Substance: CLONAZEPAM
  5. DOCUSATE SODIUM [Concomitant]
     Active Substance: DOCUSATE SODIUM
  6. DOXYCYCLINE HYCLATE [Concomitant]
     Active Substance: DOXYCYCLINE HYCLATE
  7. FLUOXETINE [Concomitant]
     Active Substance: FLUOXETINE HYDROCHLORIDE
  8. FLUTICASONE [Concomitant]
     Active Substance: FLUTICASONE
  9. FUROSEMIDE [Concomitant]
     Active Substance: FUROSEMIDE
  10. GABAPENTIN [Concomitant]
     Active Substance: GABAPENTIN
  11. LIDOCAINE [Concomitant]
     Active Substance: LIDOCAINE
  12. NITROFURANTOIN [Concomitant]
     Active Substance: NITROFURANTOIN
  13. NYSTATIN [Concomitant]
     Active Substance: NYSTATIN
  14. OMEPRAZOLE [Concomitant]
     Active Substance: OMEPRAZOLE
  15. TAMSULOSIN [Concomitant]
     Active Substance: TAMSULOSIN

REACTIONS (37)
  - Sepsis [Unknown]
  - Fall [Unknown]
  - Lipoma [Unknown]
  - Anaemia [Unknown]
  - Mixed anxiety and depressive disorder [Unknown]
  - Post-traumatic stress disorder [Unknown]
  - Obstructive sleep apnoea syndrome [Unknown]
  - Neuropathy peripheral [Unknown]
  - Mitral valve incompetence [Unknown]
  - Orthostatic hypotension [Unknown]
  - Peripheral venous disease [Unknown]
  - Gastritis [Unknown]
  - Abdominal hernia [Unknown]
  - Irritable bowel syndrome [Unknown]
  - Nephrolithiasis [Unknown]
  - Constipation [Unknown]
  - Scoliosis [Unknown]
  - Oedema [Unknown]
  - Urinary retention [Unknown]
  - Polycystic ovarian syndrome [Unknown]
  - Pelvic cyst [Unknown]
  - Hiatus hernia [Unknown]
  - Dermoid cyst [Unknown]
  - Spinal stenosis [Unknown]
  - Normocytic anaemia [Unknown]
  - Deep vein thrombosis [Unknown]
  - Acute sinusitis [Unknown]
  - Urinary tract infection [Unknown]
  - Peripheral swelling [Unknown]
  - Muscle strain [Unknown]
  - Oral pain [Unknown]
  - Cyst [Unknown]
  - Menopausal symptoms [Unknown]
  - Lymphadenopathy [Unknown]
  - Gastrooesophageal reflux disease [Unknown]
  - Peroneal nerve palsy [Unknown]
  - Memory impairment [Unknown]

NARRATIVE: CASE EVENT DATE: 20240903
